FAERS Safety Report 20468415 (Version 2)
Quarter: 2022Q1

REPORT INFORMATION
  Report Type: Spontaneous
  Country: US (occurrence: US)
  Receive Date: 20220214
  Receipt Date: 20220214
  Transmission Date: 20220423
  Serious: Yes (Other)
  Sender: FDA-Public Use
  Company Number: US-CELGENE-USA-20220203033

PATIENT
  Sex: Female
  Weight: 66.738 kg

DRUGS (1)
  1. REVLIMID [Suspect]
     Active Substance: LENALIDOMIDE
     Indication: Plasma cell myeloma
     Dosage: 25 MILLIGRAM
     Route: 048
     Dates: start: 202108

REACTIONS (5)
  - Feeling abnormal [Unknown]
  - Balance disorder [Unknown]
  - Weight increased [Unknown]
  - Pruritus [Unknown]
  - Diarrhoea [Unknown]
